FAERS Safety Report 23403257 (Version 1)
Quarter: 2024Q1

REPORT INFORMATION
  Report Type: Spontaneous
  Country: US (occurrence: US)
  Receive Date: 20240116
  Receipt Date: 20240116
  Transmission Date: 20240409
  Serious: No
  Sender: FDA-Public Use
  Company Number: US-SA-SAC20240111000547

PATIENT
  Sex: Male
  Weight: 84.36 kg

DRUGS (1)
  1. DUPIXENT [Suspect]
     Active Substance: DUPILUMAB
     Indication: Eosinophilic oesophagitis
     Dosage: DOSE AND ROUTE PRESCRIBED : 300 MG UNDER THE SKIN FREQUENCY: EVERY 7 DAYS
     Route: 058

REACTIONS (1)
  - Pain [Unknown]
